FAERS Safety Report 18746300 (Version 1)
Quarter: 2021Q1

REPORT INFORMATION
  Report Type: Spontaneous
  Country: IQ (occurrence: IQ)
  Receive Date: 20210115
  Receipt Date: 20210115
  Transmission Date: 20210419
  Serious: Yes (Other)
  Sender: FDA-Public Use
  Company Number: IQ-LUPIN PHARMACEUTICALS INC.-2021-00148

PATIENT
  Age: 70 Year
  Sex: Male

DRUGS (7)
  1. CHLOROQUINE. [Suspect]
     Active Substance: CHLOROQUINE
     Indication: COVID-19
     Dosage: UNK
     Route: 065
     Dates: start: 2020
  2. MULTIVITAMINS [VITAMINS NOS] [Suspect]
     Active Substance: VITAMINS
     Indication: COVID-19
     Dosage: UNK
     Route: 065
     Dates: start: 2020
  3. HEPARIN [Concomitant]
     Active Substance: HEPARIN SODIUM
     Indication: THROMBOSIS
     Dosage: UNK DOSE: 5000X4
     Route: 065
     Dates: start: 2020
  4. ILOPROST. [Concomitant]
     Active Substance: ILOPROST
     Indication: THROMBOSIS
     Dosage: UNK (5 DOSES)
     Route: 065
     Dates: start: 2020
  5. ILOPROST. [Concomitant]
     Active Substance: ILOPROST
     Indication: PERIPHERAL ARTERY THROMBOSIS
  6. AZITHROMYCIN ANHYDROUS. [Suspect]
     Active Substance: AZITHROMYCIN ANHYDROUS
     Indication: COVID-19
     Dosage: UNK
     Route: 065
     Dates: start: 2020
  7. HEPARIN [Concomitant]
     Active Substance: HEPARIN SODIUM
     Indication: PERIPHERAL ARTERY THROMBOSIS

REACTIONS (1)
  - Off label use [Unknown]

NARRATIVE: CASE EVENT DATE: 2020
